FAERS Safety Report 17504705 (Version 1)
Quarter: 2020Q1

REPORT INFORMATION
  Report Type: Spontaneous
  Country: FI (occurrence: FI)
  Receive Date: 20200305
  Receipt Date: 20200305
  Transmission Date: 20200409
  Serious: Yes (Other)
  Sender: FDA-Public Use
  Company Number: FI-JNJFOC-20200242788

PATIENT
  Age: 18 Year
  Sex: Female

DRUGS (2)
  1. KLEXANE [Suspect]
     Active Substance: ENOXAPARIN
     Indication: PULMONARY EMBOLISM
     Dosage: UNK UNK, QD
     Route: 065
     Dates: start: 20191201
  2. RIVAROXABAN [Suspect]
     Active Substance: RIVAROXABAN
     Indication: PULMONARY EMBOLISM
     Dosage: UNK UNK, QD
     Route: 048
     Dates: start: 20191201

REACTIONS (3)
  - Product dose omission [Unknown]
  - Labelled drug-drug interaction medication error [Unknown]
  - Thrombosis [Unknown]

NARRATIVE: CASE EVENT DATE: 202002
